FAERS Safety Report 7227156-X (Version None)
Quarter: 2011Q1

REPORT INFORMATION
  Report Type: 
  Country: None (occurrence: None)
  Receive Date: 20110114
  Receipt Date: 20110110
  Transmission Date: 20110831
  Serious: Yes (Death)
  Sender: FDA-Public Use
  Company Number: US-ROCHE-752844

PATIENT
  Sex: Female

DRUGS (3)
  1. IXEMPRA KIT [Concomitant]
     Dates: start: 20090201, end: 20090701
  2. TYKERB [Concomitant]
     Dates: start: 20090201, end: 20090701
  3. AVASTIN [Suspect]
     Route: 065
     Dates: start: 20090201, end: 20090701

REACTIONS (1)
  - DEATH [None]
